FAERS Safety Report 8537053-5 (Version None)
Quarter: 2012Q3

REPORT INFORMATION
  Report Type: 
  Country: None (occurrence: None)
  Receive Date: 20120725
  Receipt Date: 20120718
  Transmission Date: 20120928
  Serious: Yes (Other)
  Sender: FDA-Public Use
  Company Number: US-PFIZER INC-2012174786

PATIENT
  Age: 83 Year
  Sex: Female

DRUGS (4)
  1. VERAPAMIL HCL [Suspect]
     Indication: HYPERTENSION
     Dosage: 360 MG, DAILY
  2. POTASSIUM [Concomitant]
     Indication: HYPOKALAEMIA
     Route: 048
  3. KETOCONAZOLE [Interacting]
     Dosage: 300 MG, 3X/DAY
     Route: 048
  4. KETOCONAZOLE [Interacting]
     Dosage: 300 MG, 4X/DAY

REACTIONS (2)
  - ATRIOVENTRICULAR BLOCK [None]
  - DRUG INTERACTION [None]
